FAERS Safety Report 5170106-0 (Version None)
Quarter: 2006Q4

REPORT INFORMATION
  Report Type: 
  Country: None (occurrence: None)
  Receive Date: 20061212
  Receipt Date: 20061207
  Transmission Date: 20070319
  Serious: Yes (Hospitalization)
  Sender: FDA-Public Use
  Company Number: DE-MERCK-0612DEU00034

PATIENT
  Age: 80 Year
  Sex: Male

DRUGS (3)
  1. FOSAMAX PLUS D [Suspect]
     Indication: OSTEOPOROSIS
     Route: 048
     Dates: start: 20060101
  2. [THERAPY UNSPECIFIED] [Concomitant]
     Route: 065
  3. FOSAMAX [Concomitant]
     Indication: OSTEOPOROSIS
     Route: 048
     Dates: start: 20060601, end: 20060101

REACTIONS (2)
  - CORONARY ARTERY DISEASE [None]
  - PROTHROMBIN TIME ABNORMAL [None]
